FAERS Safety Report 24871156 (Version 4)
Quarter: 2025Q2

REPORT INFORMATION
  Report Type: Spontaneous
  Country: DE (occurrence: DE)
  Receive Date: 20250122
  Receipt Date: 20250509
  Transmission Date: 20250716
  Serious: Yes (Hospitalization, Other)
  Sender: AUROBINDO
  Company Number: DE-DCGMA-24204023

PATIENT
  Age: 74 Year
  Sex: Male
  Weight: 64.5 kg

DRUGS (33)
  1. BENDAMUSTINE [Suspect]
     Active Substance: BENDAMUSTINE
     Indication: Diffuse large B-cell lymphoma recurrent
     Route: 065
  2. APIXABAN [Suspect]
     Active Substance: APIXABAN
     Indication: Gastrointestinal haemorrhage
     Route: 065
  3. FLUDARABINE [Suspect]
     Active Substance: FLUDARABINE PHOSPHATE
     Indication: Diffuse large B-cell lymphoma
     Route: 042
     Dates: start: 20210304, end: 20210306
  4. KYMRIAH [Suspect]
     Active Substance: TISAGENLECLEUCEL
     Indication: Diffuse large B-cell lymphoma
     Route: 042
     Dates: start: 20210309, end: 20210309
  5. RITUXIMAB [Suspect]
     Active Substance: RITUXIMAB
     Indication: Diffuse large B-cell lymphoma recurrent
     Dosage: 694 MG/M2, ONCE A DAY 694 MG ON DAY 1
     Route: 065
     Dates: start: 20201214
  6. RITUXIMAB [Suspect]
     Active Substance: RITUXIMAB
     Route: 065
     Dates: start: 20201214
  7. RITUXIMAB [Suspect]
     Active Substance: RITUXIMAB
     Route: 065
     Dates: start: 20210111
  8. RITUXIMAB [Suspect]
     Active Substance: RITUXIMAB
     Route: 065
     Dates: start: 20210209
  9. CYCLOPHOSPHAMIDE [Suspect]
     Active Substance: CYCLOPHOSPHAMIDE
     Indication: Diffuse large B-cell lymphoma
     Route: 042
     Dates: start: 20210304, end: 20210306
  10. BENDAMUSTINE [Suspect]
     Active Substance: BENDAMUSTINE
     Indication: Product used for unknown indication
     Route: 065
  11. POLATUZUMAB VEDOTIN [Suspect]
     Active Substance: POLATUZUMAB VEDOTIN
     Indication: Diffuse large B-cell lymphoma recurrent
     Route: 065
  12. POLATUZUMAB VEDOTIN [Suspect]
     Active Substance: POLATUZUMAB VEDOTIN
     Route: 065
     Dates: start: 20210111
  13. POLATUZUMAB VEDOTIN [Suspect]
     Active Substance: POLATUZUMAB VEDOTIN
     Route: 065
     Dates: start: 20210209
  14. ELIQUIS [Suspect]
     Active Substance: APIXABAN
     Indication: Anticoagulant therapy
     Dosage: 2.5 MILLIGRAM, ONCE A DAY
     Route: 065
     Dates: start: 20201207
  15. ELIQUIS [Suspect]
     Active Substance: APIXABAN
     Indication: Peripheral vein thrombosis
  16. ELIQUIS [Suspect]
     Active Substance: APIXABAN
     Indication: Thrombosis prophylaxis
  17. FLUDARABINE PHOSPHATE [Concomitant]
     Active Substance: FLUDARABINE PHOSPHATE
     Indication: Diffuse large B-cell lymphoma
     Route: 042
     Dates: start: 20210304, end: 20210306
  18. CYCLOPHOSPHAMIDE [Concomitant]
     Active Substance: CYCLOPHOSPHAMIDE
     Indication: Diffuse large B-cell lymphoma
     Route: 042
     Dates: start: 20210304, end: 20210306
  19. ELIQUIS [Concomitant]
     Active Substance: APIXABAN
     Indication: Anticoagulant therapy
     Route: 065
     Dates: end: 202103
  20. ELIQUIS [Concomitant]
     Active Substance: APIXABAN
     Indication: Thrombosis prophylaxis
     Route: 065
  21. ELIQUIS [Concomitant]
     Active Substance: APIXABAN
     Dosage: 2.5 MILLIGRAM, ONCE A DAY
     Route: 065
     Dates: start: 20201207
  22. LEVOTHYROXINE SODIUM [Concomitant]
     Active Substance: LEVOTHYROXINE SODIUM
     Indication: Product used for unknown indication
     Route: 065
  23. AMPHOTERICIN B [Concomitant]
     Active Substance: AMPHOTERICIN B
     Indication: Product used for unknown indication
     Route: 065
  24. COTRIMOXAZOLE [Concomitant]
     Active Substance: SULFAMETHOXAZOLE\TRIMETHOPRIM
     Indication: Product used for unknown indication
     Route: 065
  25. VALACYCLOVIR HYDROCHLORIDE [Concomitant]
     Active Substance: VALACYCLOVIR HYDROCHLORIDE
     Indication: Product used for unknown indication
     Route: 065
  26. PANTOPRAZOLE [Concomitant]
     Active Substance: PANTOPRAZOLE
     Indication: Product used for unknown indication
     Route: 065
  27. HYDROCHLOROTHIAZIDE [Concomitant]
     Active Substance: HYDROCHLOROTHIAZIDE
     Indication: Product used for unknown indication
     Route: 065
  28. Calcidoc [Concomitant]
     Indication: Product used for unknown indication
     Route: 065
  29. METOPROLOL TARTRATE [Concomitant]
     Active Substance: METOPROLOL TARTRATE
     Indication: Product used for unknown indication
     Route: 065
     Dates: end: 202103
  30. METOPROLOL TARTRATE [Concomitant]
     Active Substance: METOPROLOL TARTRATE
     Route: 065
  31. RISPERIDONE [Concomitant]
     Active Substance: RISPERIDONE
     Indication: Product used for unknown indication
     Route: 065
  32. ROSUVASTATIN [Concomitant]
     Active Substance: ROSUVASTATIN
     Indication: Product used for unknown indication
     Route: 065
  33. POTASSIUM CHLORIDE [Concomitant]
     Active Substance: POTASSIUM CHLORIDE
     Indication: Product used for unknown indication
     Route: 065

REACTIONS (34)
  - Tumour pseudoprogression [Recovered/Resolved]
  - Anaemia [Unknown]
  - Condition aggravated [Unknown]
  - Thrombosis [Unknown]
  - Swelling face [Recovered/Resolved]
  - Swelling [Recovered/Resolved]
  - Shock haemorrhagic [Unknown]
  - Neurotoxicity [Recovered/Resolved]
  - Cytokine release syndrome [Recovered/Resolved]
  - Neutropenic sepsis [Unknown]
  - Delirium [Unknown]
  - Enterococcal infection [Unknown]
  - Arterial haemorrhage [Unknown]
  - Atrial fibrillation [Recovered/Resolved]
  - Interleukin level increased [Recovered/Resolved]
  - Infection [Unknown]
  - Escherichia infection [Unknown]
  - Fungal disease carrier [Unknown]
  - Dehydration [Unknown]
  - Bradycardia [Unknown]
  - Immunoglobulins decreased [Unknown]
  - C-reactive protein increased [Unknown]
  - Haemoglobin decreased [Unknown]
  - Haematocrit decreased [Unknown]
  - Blood sodium decreased [Unknown]
  - Glomerular filtration rate decreased [Unknown]
  - Blood uric acid abnormal [Unknown]
  - Blood lactate dehydrogenase abnormal [Unknown]
  - Gamma-glutamyltransferase abnormal [Unknown]
  - Blood immunoglobulin G abnormal [Unknown]
  - Blood immunoglobulin M abnormal [Unknown]
  - Body temperature increased [Recovered/Resolved]
  - Hypotension [Recovered/Resolved]
  - Cystitis [Unknown]

NARRATIVE: CASE EVENT DATE: 20201201
